FAERS Safety Report 13793172 (Version 1)
Quarter: 2017Q3

REPORT INFORMATION
  Report Type: Spontaneous
  Country: US (occurrence: US)
  Receive Date: 20170726
  Receipt Date: 20170726
  Transmission Date: 20171127
  Serious: Yes (Other)
  Sender: FDA-Public Use
  Company Number: US-ROCHE-1966909

PATIENT
  Sex: Female
  Weight: 77.63 kg

DRUGS (1)
  1. RITUXAN [Suspect]
     Active Substance: RITUXIMAB
     Indication: NEOPLASM MALIGNANT
     Route: 065
     Dates: start: 2015

REACTIONS (5)
  - Rib fracture [Recovering/Resolving]
  - Limb operation [Recovering/Resolving]
  - Fractured coccyx [Not Recovered/Not Resolved]
  - Wrist fracture [Recovered/Resolved]
  - Arthritis [Not Recovered/Not Resolved]

NARRATIVE: CASE EVENT DATE: 2016
